FAERS Safety Report 7413348-3 (Version None)
Quarter: 2011Q2

REPORT INFORMATION
  Report Type: 
  Country: None (occurrence: None)
  Receive Date: 20110413
  Receipt Date: 20100604
  Transmission Date: 20111010
  Serious: No
  Sender: FDA-Public Use
  Company Number: US-ASTRAZENECA-2010SE26009

PATIENT
  Sex: Male

DRUGS (9)
  1. AVODART [Concomitant]
  2. ATENOLOL [Suspect]
  3. HYDROCHLORIDE [Concomitant]
  4. LISINOPRIL [Suspect]
     Dosage: DOUBLE
     Route: 048
  5. LASIX [Suspect]
  6. LISINOPRIL [Suspect]
     Route: 048
  7. UROXATRAL [Suspect]
     Indication: URINARY INCONTINENCE
     Route: 048
     Dates: start: 20100201
  8. DIGOXIN [Suspect]
  9. TAMSULOSIN [Concomitant]

REACTIONS (4)
  - POLLAKIURIA [None]
  - DIZZINESS [None]
  - HYPERTENSION [None]
  - WEIGHT DECREASED [None]
